FAERS Safety Report 24323431 (Version 3)
Quarter: 2025Q1

REPORT INFORMATION
  Report Type: Spontaneous
  Country: US (occurrence: US)
  Receive Date: 20240916
  Receipt Date: 20250225
  Transmission Date: 20250409
  Serious: No
  Sender: IPSEN BIOPHARMACEUTICALS, INC.
  Company Number: US-IPSEN Group, Research and Development-2024-17908

PATIENT
  Age: 2 Year
  Sex: Female

DRUGS (7)
  1. BYLVAY [Suspect]
     Active Substance: ODEVIXIBAT
     Indication: Progressive familial intrahepatic cholestasis
     Dosage: TAKE ONE 1200 MCG ORAL CAPSULE BY MOUTH ONCE DAILY WITH A MEAL
     Route: 048
     Dates: start: 20240906
  2. HYDROXYZINE [Concomitant]
     Active Substance: HYDROXYZINE HYDROCHLORIDE
  3. RIFAMPIN [Concomitant]
     Active Substance: RIFAMPIN
  4. URSODIOL [Concomitant]
     Active Substance: URSODIOL
  5. VITAMIN D3 (SYN) [Concomitant]
  6. VITAMIN E (SYSTEMATIC) [Concomitant]
  7. VITAMIN K1 (SYN) [Concomitant]

REACTIONS (2)
  - Pruritus [Unknown]
  - Dry skin [Unknown]
